FAERS Safety Report 13806474 (Version 4)
Quarter: 2018Q1

REPORT INFORMATION
  Report Type: Report from Study
  Country: US (occurrence: US)
  Receive Date: 20170728
  Receipt Date: 20180125
  Transmission Date: 20180508
  Serious: No
  Sender: FDA-Public Use
  Company Number: US-AMGEN-USASL2017086538

PATIENT
  Age: 65 Year
  Sex: Female

DRUGS (4)
  1. REPATHA [Suspect]
     Active Substance: EVOLOCUMAB
     Indication: LOW DENSITY LIPOPROTEIN
     Dosage: 140 MG, Q2WK
     Route: 058
     Dates: start: 20161003
  2. METOPROLOL. [Concomitant]
     Active Substance: METOPROLOL
     Dosage: UNK
  3. REPATHA [Suspect]
     Active Substance: EVOLOCUMAB
     Indication: BLOOD CHOLESTEROL INCREASED
  4. HCTZ [Concomitant]
     Active Substance: HYDROCHLOROTHIAZIDE
     Dosage: UNK

REACTIONS (9)
  - Sinusitis [Unknown]
  - Toothache [Unknown]
  - Facial pain [Unknown]
  - Swelling [Not Recovered/Not Resolved]
  - Epistaxis [Unknown]
  - Oedema mucosal [Unknown]
  - Nasal ulcer [Unknown]
  - Scab [Unknown]
  - Nasal septum ulceration [Not Recovered/Not Resolved]

NARRATIVE: CASE EVENT DATE: 201612
